FAERS Safety Report 4976980-2 (Version None)
Quarter: 2006Q2

REPORT INFORMATION
  Report Type: 
  Country: None (occurrence: None)
  Receive Date: 20060412
  Receipt Date: 20060404
  Transmission Date: 20061013
  Serious: Yes (Hospitalization, Other)
  Sender: FDA-Public Use
  Company Number: USA-2004-0017727

PATIENT
  Sex: Male

DRUGS (8)
  1. OXYCONTIN [Suspect]
     Indication: PAIN
     Dosage: 40 MG, DAILY, ORAL  : 80 MG, DAILY, ORAL
     Route: 048
     Dates: start: 20000501
  2. OXYIR CAPSULES (OXYCODONE HYDROCHLORIDE) IR CAPSULE [Concomitant]
  3. VICODIN [Concomitant]
  4. DEMEROL [Concomitant]
  5. VISTARIL (HYDROXYZINE EMBONATE) [Concomitant]
  6. TORADOL [Concomitant]
  7. PAXIL [Concomitant]
  8. TENORMIN [Concomitant]

REACTIONS (32)
  - ABNORMAL DREAMS [None]
  - AFFECTIVE DISORDER [None]
  - APATHY [None]
  - ARTHRALGIA [None]
  - CONFUSIONAL STATE [None]
  - CONTUSION [None]
  - DECREASED INTEREST [None]
  - DELIRIUM TREMENS [None]
  - DEPRESSION [None]
  - DRUG ABUSER [None]
  - DRUG DEPENDENCE [None]
  - DRUG WITHDRAWAL SYNDROME [None]
  - FATIGUE [None]
  - GASTROINTESTINAL PAIN [None]
  - HALLUCINATION [None]
  - HEADACHE [None]
  - HYPERHIDROSIS [None]
  - INADEQUATE ANALGESIA [None]
  - INJURY [None]
  - INSOMNIA [None]
  - INTENTIONAL DRUG MISUSE [None]
  - IRRITABILITY [None]
  - LACRIMATION INCREASED [None]
  - NAUSEA [None]
  - NERVOUSNESS [None]
  - PARANOIA [None]
  - RETCHING [None]
  - SOMNOLENCE [None]
  - SUICIDAL IDEATION [None]
  - TREMOR [None]
  - VOMITING [None]
  - WEIGHT DECREASED [None]
